FAERS Safety Report 18886479 (Version 1)
Quarter: 2021Q1

REPORT INFORMATION
  Report Type: Spontaneous
  Country: FR (occurrence: FR)
  Receive Date: 20210212
  Receipt Date: 20210212
  Transmission Date: 20210420
  Serious: Yes (Other)
  Sender: FDA-Public Use
  Company Number: FR-PFIZER INC-2021119943

PATIENT
  Age: 73 Year
  Sex: Male
  Weight: 87 kg

DRUGS (4)
  1. ROCEPHINE [Suspect]
     Active Substance: CEFTRIAXONE SODIUM
     Indication: SEPSIS
     Dosage: UNK
     Route: 041
     Dates: start: 20210115, end: 20210126
  2. CLAFORAN [Suspect]
     Active Substance: CEFOTAXIME SODIUM
     Indication: SEPSIS
     Dosage: 2 G, 1X/DAY
     Route: 041
     Dates: start: 20210107, end: 20210115
  3. CLINDAMYCIN. [Suspect]
     Active Substance: CLINDAMYCIN
     Indication: SEPSIS
     Dosage: 1800 MG, 1X/DAY
     Route: 048
     Dates: start: 20210115
  4. REVLIMID [Suspect]
     Active Substance: LENALIDOMIDE
     Indication: PLASMA CELL MYELOMA
     Dosage: UNK
     Route: 048
     Dates: start: 20210122

REACTIONS (2)
  - Toxic skin eruption [Not Recovered/Not Resolved]
  - Off label use [Unknown]

NARRATIVE: CASE EVENT DATE: 20210115
